FAERS Safety Report 5029804-1 (Version None)
Quarter: 2006Q2

REPORT INFORMATION
  Report Type: 
  Country: None (occurrence: None)
  Receive Date: 20060620
  Receipt Date: 20060614
  Transmission Date: 20061013
  Serious: Yes (Other)
  Sender: FDA-Public Use
  Company Number: DE-AVENTIS-200611756DE

PATIENT
  Age: 49 Year
  Sex: Female
  Weight: 79 kg

DRUGS (7)
  1. DOCETAXEL [Suspect]
     Indication: BREAST CANCER
     Route: 041
     Dates: start: 20060512, end: 20060512
  2. DOCETAXEL [Suspect]
     Route: 041
     Dates: start: 20060601, end: 20060601
  3. CAPECITABINE [Suspect]
     Indication: BREAST CANCER
     Route: 048
     Dates: start: 20060512, end: 20060516
  4. CAPECITABINE [Suspect]
     Route: 048
     Dates: start: 20060516
  5. HERCEPTIN [Suspect]
     Indication: BREAST CANCER
     Route: 041
     Dates: start: 20060213, end: 20060512
  6. NAVOBAN [Concomitant]
     Dates: start: 20060512, end: 20060512
  7. DEXAMETHASONE [Concomitant]
     Dates: start: 20060512, end: 20060514

REACTIONS (10)
  - ARTHRALGIA [None]
  - ASTHENIA [None]
  - BACK PAIN [None]
  - FATIGUE [None]
  - GLOSSODYNIA [None]
  - HEADACHE [None]
  - HYPERHIDROSIS [None]
  - MUSCULOSKELETAL CHEST PAIN [None]
  - PAIN [None]
  - WHITE BLOOD CELL COUNT DECREASED [None]
